FAERS Safety Report 11026203 (Version 1)
Quarter: 2015Q2

REPORT INFORMATION
  Report Type: Spontaneous
  Country: US (occurrence: None)
  Receive Date: 20150413
  Receipt Date: 20150413
  Transmission Date: 20150821
  Serious: No
  Sender: FDA-Public Use
  Company Number: None

PATIENT
  Age: 81 Year
  Sex: Female
  Weight: 61.24 kg

DRUGS (11)
  1. B1-B6-B12 INJECTIONS [Concomitant]
  2. LISINOPRIL. [Concomitant]
     Active Substance: LISINOPRIL
  3. AMLODIPINE BESYLATE. [Concomitant]
     Active Substance: AMLODIPINE BESYLATE
  4. CYCLOBENZAPRINE [Concomitant]
     Active Substance: CYCLOBENZAPRINE
  5. BACLOFEN 10 MG TABLETS [Suspect]
     Active Substance: BACLOFEN
     Indication: MUSCLE SPASMS
     Dosage: 1 PILL (I TOOK IT FOR 2 NIGHTS ONLY 3 TIMES A DAY. I ONLY TOOK 1. AT NIGHT BY MOUTH
     Route: 048
     Dates: start: 20150330, end: 20150401
  6. BACLOFEN 10 MG TABLETS [Suspect]
     Active Substance: BACLOFEN
     Indication: MUSCLE CONTRACTIONS INVOLUNTARY
     Dosage: 1 PILL (I TOOK IT FOR 2 NIGHTS ONLY 3 TIMES A DAY. I ONLY TOOK 1. AT NIGHT BY MOUTH
     Route: 048
     Dates: start: 20150330, end: 20150401
  7. METOPROLOL ER [Concomitant]
     Active Substance: METOPROLOL SUCCINATE
  8. PREDNISONE. [Concomitant]
     Active Substance: PREDNISONE
  9. B. COMPLEX [Concomitant]
  10. BACLOFEN 10 MG TABLETS [Suspect]
     Active Substance: BACLOFEN
     Dosage: 1 PILL (I TOOK IT FOR 2 NIGHTS ONLY 3 TIMES A DAY. I ONLY TOOK 1. AT NIGHT BY MOUTH
     Route: 048
     Dates: start: 20150330, end: 20150401
  11. CALCIUM [Concomitant]
     Active Substance: CALCIUM

REACTIONS (15)
  - Neck pain [None]
  - Arthralgia [None]
  - Haemorrhage [None]
  - Muscular weakness [None]
  - Activities of daily living impaired [None]
  - Vertigo [None]
  - Abdominal pain upper [None]
  - Gangrene [None]
  - Incision site pain [None]
  - Feeling abnormal [None]
  - Pain in extremity [None]
  - Headache [None]
  - Impaired driving ability [None]
  - Nausea [None]
  - Contusion [None]

NARRATIVE: CASE EVENT DATE: 20150330
